FAERS Safety Report 6546897-0 (Version None)
Quarter: 2010Q1

REPORT INFORMATION
  Report Type: 
  Country: None (occurrence: None)
  Receive Date: 20100122
  Receipt Date: 20091222
  Transmission Date: 20100710
  Serious: No
  Sender: FDA-Public Use
  Company Number: US-BAYER-200936305NA

PATIENT
  Age: 55 Year
  Sex: Male

DRUGS (7)
  1. ULTRAVIST 150 [Suspect]
     Indication: COMPUTERISED TOMOGRAM ABDOMEN
     Dosage: AS USED: `50 ML
     Route: 042
     Dates: start: 20090429, end: 20090429
  2. ORAL CONTRAST [Concomitant]
  3. METFORMIN HYDROCHLORIDE [Concomitant]
  4. VERAPAMIL [Concomitant]
  5. ACTOS [Concomitant]
  6. DIOVAN [Concomitant]
  7. TOPROL-XL [Concomitant]

REACTIONS (2)
  - NASAL CONGESTION [None]
  - THROAT TIGHTNESS [None]
